FAERS Safety Report 15248398 (Version 1)
Quarter: 2018Q3

REPORT INFORMATION
  Report Type: Report from Study
  Country: US (occurrence: US)
  Receive Date: 20180807
  Receipt Date: 20180807
  Transmission Date: 20181010
  Serious: Yes (Hospitalization)
  Sender: FDA-Public Use
  Company Number: US-SA-2018SA210597

PATIENT
  Age: 34 Year
  Sex: Female
  Weight: 96.6 kg

DRUGS (9)
  1. NUVIGIL [Concomitant]
     Active Substance: ARMODAFINIL
     Indication: DRUG THERAPY
     Dosage: 250 MG, QD
     Route: 048
     Dates: start: 201304
  2. VITAMIN C [ASCORBIC ACID] [Concomitant]
     Indication: PROPHYLAXIS
     Dosage: 1000 MG, QD
     Route: 048
     Dates: start: 2010
  3. BOTOX [Concomitant]
     Active Substance: ONABOTULINUMTOXINA
     Indication: PROPHYLAXIS
     Dosage: 1 DF, QD
     Route: 067
     Dates: start: 201804
  4. ALEMTUZUMAB [Suspect]
     Active Substance: ALEMTUZUMAB
     Indication: MULTIPLE SCLEROSIS
     Dosage: UNK UNK, UNK; 60 MG
     Route: 041
     Dates: start: 20090824, end: 20090828
  5. ALEMTUZUMAB [Suspect]
     Active Substance: ALEMTUZUMAB
     Dosage: UNK; 36 MG
     Route: 041
     Dates: start: 20110825, end: 20110827
  6. ADVIL [IBUPROFEN] [Concomitant]
     Active Substance: IBUPROFEN
     Indication: DRUG THERAPY
     Dosage: 400 MG, QD
     Route: 048
     Dates: start: 20101110
  7. ALEMTUZUMAB [Suspect]
     Active Substance: ALEMTUZUMAB
     Dosage: UNK; 36 MG
     Route: 041
     Dates: start: 20100825, end: 20100827
  8. AVIANE [Concomitant]
     Active Substance: ETHINYL ESTRADIOL\LEVONORGESTREL
     Indication: PROPHYLAXIS
     Dosage: 1 DF, QD; TABLET
     Route: 048
     Dates: start: 201706
  9. COLACE [Concomitant]
     Active Substance: DOCUSATE SODIUM
     Indication: DRUG THERAPY
     Dosage: UNK UNK, UNK
     Route: 048
     Dates: start: 201402

REACTIONS (1)
  - Multiple sclerosis [Unknown]

NARRATIVE: CASE EVENT DATE: 20180724
